FAERS Safety Report 7362010-4 (Version None)
Quarter: 2011Q1

REPORT INFORMATION
  Report Type: 
  Country: None (occurrence: None)
  Receive Date: 20110315
  Receipt Date: 20110315
  Transmission Date: 20110831
  Serious: Yes (Death)
  Sender: FDA-Public Use
  Company Number: None

PATIENT
  Age: 70 Year
  Sex: Female
  Weight: 73.0291 kg

DRUGS (3)
  1. AVASTIN [Suspect]
     Indication: LUNG CARCINOMA CELL TYPE UNSPECIFIED STAGE IV
     Dosage: 3 WK INTERVALS
     Dates: start: 20100922, end: 20101013
  2. AVASTIN [Suspect]
     Indication: LUNG CARCINOMA CELL TYPE UNSPECIFIED STAGE IV
     Dosage: 3 WK INTERVALS
     Dates: start: 20101113
  3. AVASTIN [Suspect]
     Indication: LUNG CARCINOMA CELL TYPE UNSPECIFIED STAGE IV
     Dosage: 3 WK INTERVALS
     Dates: start: 20100804, end: 20100825

REACTIONS (1)
  - LARGE INTESTINE PERFORATION [None]
